FAERS Safety Report 9412727 (Version 2)
Quarter: 2013Q3

REPORT INFORMATION
  Report Type: Spontaneous
  Country: US (occurrence: US)
  Receive Date: 20130722
  Receipt Date: 20130904
  Transmission Date: 20140515
  Serious: No
  Sender: FDA-Public Use
  Company Number: US-PFIZER INC-2013211714

PATIENT
  Age: 13 Month
  Sex: Male
  Weight: 9.98 kg

DRUGS (1)
  1. INFANT ADVIL CONCENTRATED DROPS [Suspect]
     Indication: PYREXIA
     Dosage: 1.875 ML, EVERY 8 HOURS
     Route: 048
     Dates: start: 20130716

REACTIONS (3)
  - Poor quality drug administered [Unknown]
  - Vomiting [Unknown]
  - Product contamination physical [Unknown]
